FAERS Safety Report 6107129-0 (Version None)
Quarter: 2009Q1

REPORT INFORMATION
  Report Type: 
  Country: None (occurrence: None)
  Receive Date: 20090309
  Receipt Date: 20090223
  Transmission Date: 20090719
  Serious: Yes (Disabling)
  Sender: FDA-Public Use
  Company Number: PHHY2009CO06767

PATIENT
  Age: 25 Year
  Sex: Female

DRUGS (9)
  1. SYNTOCINON [Suspect]
     Indication: LABOUR INDUCTION
     Dosage: 15 U, UNK
     Route: 042
     Dates: start: 20081021, end: 20081021
  2. SYNTOCINON [Suspect]
     Indication: UTERINE ATONY
  3. SYNTOCINON [Suspect]
     Indication: POSTPARTUM HAEMORRHAGE
  4. DEXTROSE [Suspect]
  5. METHERGINE [Concomitant]
     Route: 030
  6. MISOPROSTOL [Concomitant]
  7. MORPHINE [Concomitant]
     Route: 042
  8. DEXAMETHASONE [Concomitant]
  9. CEFALOZIN [Concomitant]

REACTIONS (7)
  - ARRESTED LABOUR [None]
  - CAESAREAN SECTION [None]
  - DRUG EXPOSURE DURING PREGNANCY [None]
  - HYPOVOLAEMIC SHOCK [None]
  - HYSTERECTOMY [None]
  - POSTPARTUM HAEMORRHAGE [None]
  - UTERINE ATONY [None]
